FAERS Safety Report 8331680-6 (Version None)
Quarter: 2012Q2

REPORT INFORMATION
  Report Type: 
  Country: None (occurrence: None)
  Receive Date: 20120502
  Receipt Date: 20110405
  Transmission Date: 20120825
  Serious: No
  Sender: FDA-Public Use
  Company Number: US-ASTRAZENECA-2011SE73977

PATIENT

DRUGS (1)
  1. ENTOCORT EC [Suspect]
     Route: 048

REACTIONS (1)
  - RETINAL DISORDER [None]
